FAERS Safety Report 4810436-2 (Version None)
Quarter: 2005Q4

REPORT INFORMATION
  Report Type: 
  Country: None (occurrence: None)
  Receive Date: 20051024
  Receipt Date: 20051014
  Transmission Date: 20060501
  Serious: Yes (Hospitalization, Other)
  Sender: FDA-Public Use
  Company Number: KII-2005-0019051

PATIENT
  Age: 34 Year
  Sex: Female

DRUGS (3)
  1. MORPHINE [Suspect]
     Dosage: SEE TEXT, ORAL
     Route: 048
  2. IMIPRAMINE [Suspect]
     Dosage: SEE TEXT, ORAL
     Route: 048
  3. DIET PILL () [Suspect]
     Dosage: ORAL
     Route: 048

REACTIONS (10)
  - ANXIETY [None]
  - BACK PAIN [None]
  - BODY TEMPERATURE INCREASED [None]
  - ELECTROCARDIOGRAM QRS COMPLEX PROLONGED [None]
  - MULTIPLE DRUG OVERDOSE [None]
  - PARALYSIS [None]
  - POLYSUBSTANCE ABUSE [None]
  - PSYCHOTIC DISORDER [None]
  - SEDATION [None]
  - SINUS TACHYCARDIA [None]
